FAERS Safety Report 6412426-5 (Version None)
Quarter: 2009Q4

REPORT INFORMATION
  Report Type: 
  Country: None (occurrence: None)
  Receive Date: 20091023
  Receipt Date: 20091014
  Transmission Date: 20100525
  Serious: Yes (Other)
  Sender: FDA-Public Use
  Company Number: PT-MERCK-0910PRT00005

PATIENT
  Age: 72 Year
  Sex: Female
  Weight: 65 kg

DRUGS (5)
  1. JANUVIA [Suspect]
     Indication: TYPE 2 DIABETES MELLITUS
     Route: 048
     Dates: start: 20090701, end: 20090901
  2. METFORMIN [Concomitant]
     Route: 065
  3. ASPIRIN [Concomitant]
     Route: 065
  4. ST JOHNS WORT [Concomitant]
     Indication: DEPRESSION
     Route: 065
  5. TRANDOLAPRIL [Concomitant]
     Indication: HYPERTENSION
     Route: 065

REACTIONS (3)
  - ABDOMINAL DISTENSION [None]
  - DECREASED APPETITE [None]
  - WEIGHT DECREASED [None]
